FAERS Safety Report 15261383 (Version 1)
Quarter: 2018Q3

REPORT INFORMATION
  Report Type: Spontaneous
  Country: US (occurrence: US)
  Receive Date: 20180719
  Receipt Date: 20180719
  Transmission Date: 20181010
  Serious: Yes (Disabling)
  Sender: FDA-Public Use
  Company Number: None

PATIENT
  Age: 27 Year
  Sex: Female
  Weight: 72 kg

DRUGS (2)
  1. BRIVIACT [Concomitant]
     Active Substance: BRIVARACETAM
  2. APTIOM [Suspect]
     Active Substance: ESLICARBAZEPINE ACETATE
     Indication: EPILEPSY
     Dosage: ?          QUANTITY:2 TABLET(S);?
     Route: 048
     Dates: start: 20171001, end: 20180719

REACTIONS (3)
  - Goitre [None]
  - Iodine deficiency [None]
  - Sensation of foreign body [None]

NARRATIVE: CASE EVENT DATE: 20180628
